FAERS Safety Report 6055458-1 (Version None)
Quarter: 2009Q1

REPORT INFORMATION
  Report Type: 
  Country: None (occurrence: None)
  Receive Date: 20090128
  Receipt Date: 20090121
  Transmission Date: 20090719
  Serious: Yes (Other)
  Sender: FDA-Public Use
  Company Number: US-AVENTIS-200910315US

PATIENT
  Age: 50 Year
  Sex: Female

DRUGS (10)
  1. LANTUS [Suspect]
     Dosage: DOSE: 60 U IN AM AND 60 U IN PM
     Route: 058
     Dates: start: 20050101
  2. APIDRA [Suspect]
     Dosage: DOSE: UNK
     Dates: start: 20050101
  3. OPTICLIK (INSULIN INJECTION PEN) [Suspect]
  4. OPTICLIK GREY [Suspect]
  5. LIPITOR [Concomitant]
     Dosage: DOSE: UNK
  6. DIOVANE [Concomitant]
     Dosage: DOSE: UNK
  7. LEVOTHYROXINE SODIUM [Concomitant]
     Dosage: DOSE: UNK
  8. NEXIUM [Concomitant]
     Dosage: DOSE: UNK
  9. ASPIRIN [Concomitant]
     Dosage: DOSE: UNK
  10. PLAVIX [Concomitant]
     Dosage: DOSE: UNK

REACTIONS (2)
  - RETINOPATHY [None]
  - VISUAL IMPAIRMENT [None]
